FAERS Safety Report 4556819-X (Version None)
Quarter: 2005Q1

REPORT INFORMATION
  Report Type: 
  Country: None (occurrence: None)
  Receive Date: 20050118
  Receipt Date: 20050104
  Transmission Date: 20050727
  Serious: Yes (Death, Hospitalization)
  Sender: FDA-Public Use
  Company Number: 2004-06602

PATIENT
  Age: 63 Year
  Sex: Male

DRUGS (7)
  1. HEPSERA [Suspect]
     Indication: HEPATITIS B
     Dosage: SEE IMAGE
     Route: 048
     Dates: start: 20030929, end: 20030930
  2. HEPSERA [Suspect]
     Indication: HEPATITIS B
     Dosage: SEE IMAGE
     Route: 048
     Dates: start: 20031008, end: 20040114
  3. HEPSERA [Suspect]
     Indication: HEPATITIS B
     Dosage: SEE IMAGE
     Route: 048
     Dates: start: 20040116, end: 20040121
  4. HEPSERA [Suspect]
     Indication: HEPATITIS B
     Dosage: SEE IMAGE
     Route: 048
     Dates: start: 20040122
  5. FUROSEMIDE [Concomitant]
  6. CIPROFLOXACIN [Concomitant]
  7. LACTULOSE [Concomitant]

REACTIONS (15)
  - ACTIVATED PARTIAL THROMBOPLASTIN TIME PROLONGED [None]
  - ASCITES [None]
  - BLOOD ALBUMIN DECREASED [None]
  - BLOOD POTASSIUM INCREASED [None]
  - BLOOD SODIUM INCREASED [None]
  - BLOOD URINE PRESENT [None]
  - DYSPNOEA [None]
  - HEPATIC FAILURE [None]
  - HYPONATRAEMIA [None]
  - INTERNATIONAL NORMALISED RATIO INCREASED [None]
  - OEDEMA PERIPHERAL [None]
  - PLATELET COUNT DECREASED [None]
  - PLEURAL EFFUSION [None]
  - RENAL IMPAIRMENT [None]
  - URINARY CASTS [None]
